FAERS Safety Report 14377627 (Version 2)
Quarter: 2018Q3

REPORT INFORMATION
  Report Type: Report from Study
  Country: BR (occurrence: BR)
  Receive Date: 20180111
  Receipt Date: 20180927
  Transmission Date: 20181010
  Serious: Yes (Hospitalization, Other)
  Sender: FDA-Public Use
  Company Number: PHHY2018BR001381

PATIENT
  Age: 66 Year
  Sex: Female
  Weight: 48 kg

DRUGS (1)
  1. COSENTYX [Suspect]
     Active Substance: SECUKINUMAB
     Indication: PSORIATIC ARTHROPATHY
     Dosage: 150 MG, QMO
     Route: 058
     Dates: start: 20170602

REACTIONS (12)
  - Anaemia [Recovered/Resolved]
  - Procedural complication [Recovering/Resolving]
  - Femur fracture [Recovering/Resolving]
  - Diabetes mellitus inadequate control [Recovered/Resolved]
  - Asthenia [Recovering/Resolving]
  - Urinary retention [Unknown]
  - Mobility decreased [Not Recovered/Not Resolved]
  - Fall [Recovering/Resolving]
  - Weight decreased [Recovering/Resolving]
  - Gait disturbance [Recovering/Resolving]
  - Rheumatic disorder [Unknown]
  - Weight increased [Not Recovered/Not Resolved]

NARRATIVE: CASE EVENT DATE: 20180524
